FAERS Safety Report 8766133 (Version 1)
Quarter: 2012Q4

REPORT INFORMATION
  Report Type: 
  Country: JP (occurrence: JP)
  Receive Date: 20120904
  Receipt Date: 20120904
  Transmission Date: 20130627
  Serious: Yes (Life-Threatening, Hospitalization, Other)
  Sender: FDA-Public Use
  Company Number: JP-009507513-2011SP046097

PATIENT

DRUGS (15)
  1. DIAZOXIDE [Suspect]
     Indication: HYPOGLYCAEMIA
     Dosage: 50 mg, BID
     Route: 048
     Dates: start: 20110218, end: 20110219
  2. DIAZOXIDE [Suspect]
     Dosage: 50 mg in the evening and 100 mg at night
     Route: 048
     Dates: start: 20110220, end: 20110222
  3. DIAZOXIDE [Suspect]
     Dosage: 50 mg at lunchtime, 50 mg in the evening and 100 mg at night
     Route: 048
     Dates: start: 20110223, end: 20110228
  4. DIAZOXIDE [Suspect]
     Dosage: 50 mg, BID
     Route: 048
     Dates: start: 20110301, end: 20110301
  5. NORVASC [Concomitant]
     Indication: HYPERTENSION
     Dosage: 2.5 mg, UNK
     Route: 048
     Dates: start: 2004
  6. AMLODIN (AMLODIPINE BESYLATE) [Concomitant]
     Indication: HYPERTENSION
     Dosage: UNK
     Route: 048
     Dates: start: 2004
  7. URSO [Concomitant]
     Indication: CHOLELITHIASIS
     Dosage: 300 mg, qd
     Route: 048
     Dates: start: 1991
  8. LIPITOR [Concomitant]
     Indication: DYSLIPIDAEMIA
     Dosage: 10 mg, divided dose frequency
     Route: 048
     Dates: start: 200007
  9. SIGMART [Concomitant]
     Indication: ANGINA PECTORIS
     Dosage: 15 mg, divided dise frequency unknown
     Route: 048
     Dates: start: 200903
  10. FUROSEMIDE [Concomitant]
     Indication: RENAL FAILURE CHRONIC
     Dosage: 40 mg, divided dose frequency unknown
     Route: 048
     Dates: start: 20100606
  11. SPIRONOLACTONE [Concomitant]
     Indication: RENAL FAILURE CHRONIC
     Dosage: 25 mg, divided dose frequency unknown
     Route: 048
     Dates: start: 20110124
  12. IRBETAN [Concomitant]
     Indication: ANGINA PECTORIS
     Dosage: 100 mg, divided dose frequency unknown
     Route: 048
     Dates: start: 201004
  13. IRBETAN [Concomitant]
     Indication: RENAL DISORDER
  14. TAKEPRON [Concomitant]
     Indication: GASTROOESOPHAGEAL REFLUX DISEASE
     Dosage: UNK
     Route: 048
     Dates: start: 200810, end: 20110303
  15. FOSAMAC [Concomitant]
     Indication: OSTEOPOROSIS
     Dosage: 35 mg, qw (divided dose frequency unknown)

REACTIONS (7)
  - Thrombocytopenia [Recovered/Resolved]
  - Wheezing [Recovered/Resolved]
  - Renal failure [Recovering/Resolving]
  - Oedema [Recovered/Resolved]
  - Anaemia [Recovering/Resolving]
  - Rash [Recovered/Resolved]
  - Pulmonary congestion [Unknown]
